FAERS Safety Report 9441065 (Version 1)
Quarter: 2013Q3

REPORT INFORMATION
  Report Type: Spontaneous
  Country: US (occurrence: US)
  Receive Date: 20130805
  Receipt Date: 20130805
  Transmission Date: 20140515
  Serious: Yes (Hospitalization)
  Sender: FDA-Public Use
  Company Number: US-ENDO PHARMACEUTICALS INC.-PRED20130048

PATIENT
  Age: 68 Year
  Sex: Male

DRUGS (15)
  1. PREDNISONE [Suspect]
     Indication: PROPHYLAXIS AGAINST TRANSPLANT REJECTION
     Route: 048
     Dates: start: 20130628
  2. HECORIA [Suspect]
     Indication: PROPHYLAXIS AGAINST TRANSPLANT REJECTION
     Route: 048
     Dates: start: 20130628
  3. SULFAMETHOXAZOLE + TRIMETHOPRIM [Concomitant]
     Indication: INFECTION PROPHYLAXIS
     Dosage: UNKNOWN
     Route: 048
  4. ALPRAZOLAM [Concomitant]
     Indication: ANXIETY
     Dosage: UNKNOWN
     Route: 048
  5. HYDROCODONE BITARTRATE / ACETAMINOPHEN [Concomitant]
     Indication: PAIN
     Dosage: UNKNOWN
     Route: 048
  6. DOC-Q-LACE SOFTGEL [Concomitant]
     Indication: FAECES HARD
     Dosage: UNKNOWN
     Route: 048
  7. NYSTATIN [Concomitant]
     Indication: PRODUCT USED FOR UNKNOWN INDICATION
     Dosage: UNKNOWN
     Route: 065
  8. ASPIRIN [Concomitant]
     Indication: PRODUCT USED FOR UNKNOWN INDICATION
     Dosage: UNKNOWN
     Route: 065
  9. NORVASC [Concomitant]
     Indication: HYPERTENSION
     Dosage: UNKNOWN
     Route: 065
  10. CARVEDILOL [Concomitant]
     Indication: HYPERTENSION
     Dosage: UNKNOWN
     Route: 065
  11. JANUVIA [Concomitant]
     Indication: BLOOD GLUCOSE INCREASED
     Dosage: UNKNOWN
     Route: 065
  12. LANTUS [Concomitant]
     Indication: BLOOD GLUCOSE INCREASED
     Dosage: UNKNOWN
     Route: 065
  13. PAROXETINE [Concomitant]
     Indication: AFFECTIVE DISORDER
     Dosage: UNKNOWN
     Route: 065
  14. OMEPRAZOLE [Concomitant]
     Indication: PROPHYLAXIS AGAINST GASTROINTESTINAL ULCER
     Dosage: UNKNOWN
     Route: 065
  15. OMEPRAZOLE [Concomitant]
     Indication: PROPHYLAXIS

REACTIONS (2)
  - Liver transplant rejection [Not Recovered/Not Resolved]
  - Blood glucose increased [Not Recovered/Not Resolved]
